FAERS Safety Report 16377093 (Version 1)
Quarter: 2019Q3

REPORT INFORMATION
  Report Type: Spontaneous
  Country: US (occurrence: US)
  Receive Date: 20190530
  Receipt Date: 20190530
  Transmission Date: 20191004
  Serious: Yes (Life-Threatening, Disabling)
  Sender: FDA-Public Use
  Company Number: None

PATIENT
  Age: 25 Year
  Sex: Male
  Weight: 94.5 kg

DRUGS (2)
  1. NATURE-MADE MULTI-VITAMIN [Concomitant]
  2. PROPECIA [Suspect]
     Active Substance: FINASTERIDE
     Indication: ANDROGENETIC ALOPECIA
     Dosage: ?          QUANTITY:1 TABLET(S);?
     Route: 048

REACTIONS (6)
  - Disturbance in attention [None]
  - Depression [None]
  - Lethargy [None]
  - Muscle atrophy [None]
  - Loss of libido [None]
  - Suicidal ideation [None]

NARRATIVE: CASE EVENT DATE: 20170915
